FAERS Safety Report 12910946 (Version 3)
Quarter: 2018Q2

REPORT INFORMATION
  Report Type: Spontaneous
  Country: US (occurrence: US)
  Receive Date: 20161104
  Receipt Date: 20180421
  Transmission Date: 20180711
  Serious: Yes (Other)
  Sender: FDA-Public Use
  Company Number: US-JNJFOC-20161018993

PATIENT
  Age: 68 Year
  Sex: Female

DRUGS (5)
  1. XARELTO [Suspect]
     Active Substance: RIVAROXABAN
     Indication: CEREBROVASCULAR ACCIDENT PROPHYLAXIS
     Dosage: 15 MG AND 20 MG
     Route: 048
     Dates: start: 201501, end: 201603
  2. XARELTO [Suspect]
     Active Substance: RIVAROXABAN
     Indication: INTESTINAL ISCHAEMIA
     Dosage: 15 MG AND 20 MG
     Route: 048
     Dates: start: 201501, end: 201603
  3. XARELTO [Suspect]
     Active Substance: RIVAROXABAN
     Indication: THROMBOSIS PROPHYLAXIS
     Dosage: 15 MG AND 20 MG
     Route: 048
     Dates: start: 201501, end: 201603
  4. XARELTO [Suspect]
     Active Substance: RIVAROXABAN
     Indication: ATRIAL FIBRILLATION
     Dosage: 15 MG AND 20 MG
     Route: 048
     Dates: start: 201501, end: 201603
  5. ASPIRIN. [Suspect]
     Active Substance: ASPIRIN
     Indication: PRODUCT USED FOR UNKNOWN INDICATION
     Route: 048

REACTIONS (1)
  - Cystitis haemorrhagic [Recovering/Resolving]

NARRATIVE: CASE EVENT DATE: 201601
